FAERS Safety Report 7604283-6 (Version None)
Quarter: 2011Q3

REPORT INFORMATION
  Report Type: 
  Country: None (occurrence: None)
  Receive Date: 20110712
  Receipt Date: 20110706
  Transmission Date: 20111222
  Serious: Yes (Other)
  Sender: FDA-Public Use
  Company Number: US-PFIZER INC-2011055202

PATIENT
  Sex: Male

DRUGS (1)
  1. SUTENT [Suspect]
     Indication: MALIGNANT URINARY TRACT NEOPLASM
     Dosage: 1 CAPSULE CYCLIC, 4 WEEKS ON/2 WEEKS OFF
     Route: 048

REACTIONS (1)
  - HYPERTENSIVE ENCEPHALOPATHY [None]
